FAERS Safety Report 6269875-8 (Version None)
Quarter: 2009Q3

REPORT INFORMATION
  Report Type: 
  Country: None (occurrence: None)
  Receive Date: 20090716
  Receipt Date: 20090707
  Transmission Date: 20100115
  Serious: Yes (Other)
  Sender: FDA-Public Use
  Company Number: PHHY2009BR27850

PATIENT
  Age: 14 Year
  Sex: Male
  Weight: 45 kg

DRUGS (1)
  1. TRILEPTAL [Suspect]
     Indication: NERVOUS SYSTEM DISORDER
     Dosage: 300 MG/DAY
     Route: 048
     Dates: start: 20080101

REACTIONS (1)
  - NERVOUS SYSTEM DISORDER [None]
